FAERS Safety Report 6518180-0 (Version None)
Quarter: 2009Q4

REPORT INFORMATION
  Report Type: 
  Country: None (occurrence: None)
  Receive Date: 20091218
  Receipt Date: 20091204
  Transmission Date: 20100525
  Serious: Yes (Life-Threatening)
  Sender: FDA-Public Use
  Company Number: 1000003731

PATIENT
  Age: 75 Year
  Sex: Male
  Weight: 82.8 kg

DRUGS (10)
  1. MEMANTINE HCL [Suspect]
     Indication: DEMENTIA
     Dosage: 5 MG (5 MG, 1 IN 1 D), ORAL
     Route: 048
     Dates: start: 20080425, end: 20080425
  2. AMLODIPINE [Concomitant]
  3. ASPIRIN [Concomitant]
  4. DOXAZOSIN [Concomitant]
  5. FUROSEMIDE [Concomitant]
  6. OMEPRAZOLE [Concomitant]
  7. PAROXETINE HCL [Concomitant]
  8. TELMISARTAN [Concomitant]
  9. TOLBUTAMIDE (500 MILLIGRAM) [Concomitant]
  10. ZOPICLONE [Concomitant]

REACTIONS (8)
  - DYSKINESIA [None]
  - DYSPNOEA [None]
  - MIOSIS [None]
  - MUSCULOSKELETAL STIFFNESS [None]
  - RESTLESSNESS [None]
  - SEDATION [None]
  - SOMNOLENCE [None]
  - UNRESPONSIVE TO STIMULI [None]
